FAERS Safety Report 20627636 (Version 1)
Quarter: 2022Q1

REPORT INFORMATION
  Report Type: Spontaneous
  Country: US (occurrence: US)
  Receive Date: 20220323
  Receipt Date: 20220323
  Transmission Date: 20220424
  Serious: Yes (Other)
  Sender: FDA-Public Use
  Company Number: US-PFIZER INC-202200092653

PATIENT
  Age: 82 Year
  Sex: Female

DRUGS (1)
  1. XELJANZ XR [Suspect]
     Active Substance: TOFACITINIB CITRATE
     Dosage: 11 MG
     Dates: start: 202112

REACTIONS (8)
  - Arthritis [Unknown]
  - Joint swelling [Unknown]
  - Illness [Unknown]
  - Peripheral swelling [Unknown]
  - Mouth swelling [Unknown]
  - Pain [Unknown]
  - Herpes zoster [Unknown]
  - Muscle spasms [Unknown]
